FAERS Safety Report 14664348 (Version 1)
Quarter: 2018Q1

REPORT INFORMATION
  Report Type: Spontaneous
  Country: US (occurrence: US)
  Receive Date: 20180319
  Receipt Date: 20180319
  Transmission Date: 20180509
  Serious: Yes (Death)
  Sender: FDA-Public Use
  Company Number: None

PATIENT
  Age: 89 Year
  Sex: Female

DRUGS (1)
  1. PROLIA [Suspect]
     Active Substance: DENOSUMAB
     Indication: OSTEOPOROSIS
     Dosage: FREQUENCY - EVERY 6 MONTHS
     Route: 058
     Dates: start: 20170919, end: 20180306

REACTIONS (1)
  - Death [None]

NARRATIVE: CASE EVENT DATE: 20180306
